FAERS Safety Report 7935015-X (Version None)
Quarter: 2011Q4

REPORT INFORMATION
  Report Type: 
  Country: None (occurrence: None)
  Receive Date: 20111117
  Receipt Date: 20111104
  Transmission Date: 20120403
  Serious: Yes (Death, Hospitalization, Other)
  Sender: FDA-Public Use
  Company Number: 2011MA016052

PATIENT
  Age: 84 Year
  Sex: Female
  Weight: 100 kg

DRUGS (4)
  1. DIGOXIN [Suspect]
     Indication: ATRIAL FIBRILLATION
     Dosage: 0.25 MG;QD;PO
     Route: 048
     Dates: start: 20060119, end: 20090328
  2. MORPHINE [Concomitant]
  3. VERSED [Concomitant]
  4. SOLU-MEDROL [Concomitant]

REACTIONS (17)
  - UNEVALUABLE EVENT [None]
  - NAUSEA [None]
  - ECONOMIC PROBLEM [None]
  - HYPOTENSION [None]
  - ASTHENIA [None]
  - EMOTIONAL DISORDER [None]
  - ABDOMINAL PAIN [None]
  - ATRIOVENTRICULAR BLOCK [None]
  - MENTAL DISORDER [None]
  - GASTROENTERITIS [None]
  - BRADYCARDIA [None]
  - PAIN [None]
  - DEHYDRATION [None]
  - INJURY [None]
  - TOXICITY TO VARIOUS AGENTS [None]
  - FATIGUE [None]
  - DIZZINESS [None]
